FAERS Safety Report 8301426-6 (Version None)
Quarter: 2012Q2

REPORT INFORMATION
  Report Type: 
  Country: None (occurrence: None)
  Receive Date: 20120420
  Receipt Date: 20120408
  Transmission Date: 20120825
  Serious: No
  Sender: FDA-Public Use
  Company Number: GB-JNJFOC-20120311936

PATIENT
  Sex: Female

DRUGS (1)
  1. FENTANYL-100 [Suspect]
     Indication: PRODUCT USED FOR UNKNOWN INDICATION
     Route: 062

REACTIONS (5)
  - PRODUCT QUALITY ISSUE [None]
  - DRUG ADMINISTRATION ERROR [None]
  - WRONG TECHNIQUE IN DRUG USAGE PROCESS [None]
  - HYPERHIDROSIS [None]
  - WITHDRAWAL SYNDROME [None]
